FAERS Safety Report 6019514-6 (Version None)
Quarter: 2008Q4

REPORT INFORMATION
  Report Type: 
  Country: None (occurrence: None)
  Receive Date: 20081224
  Receipt Date: 20081223
  Transmission Date: 20090506
  Serious: Yes (Other)
  Sender: FDA-Public Use
  Company Number: CA-VALEANT-2008VX002573

PATIENT
  Age: 68 Year
  Sex: Female

DRUGS (6)
  1. CESAMET [Suspect]
     Indication: BACK PAIN
     Route: 065
     Dates: start: 20080406, end: 20081110
  2. LOVASTATIN [Concomitant]
     Route: 065
  3. SYNTHROID [Concomitant]
     Route: 065
  4. METFORMIN HCL [Concomitant]
     Route: 065
  5. CHOLESTYRAMINE [Concomitant]
     Dosage: DOSE UNIT:
     Route: 065
  6. NOVOLIN [Concomitant]
     Route: 065

REACTIONS (4)
  - HERNIA REPAIR [None]
  - MALAISE [None]
  - VISION BLURRED [None]
  - VISUAL ACUITY REDUCED [None]
